FAERS Safety Report 5454917-X (Version None)
Quarter: 2007Q3

REPORT INFORMATION
  Report Type: 
  Country: None (occurrence: None)
  Receive Date: 20070917
  Receipt Date: 20070905
  Transmission Date: 20080115
  Serious: Yes (Hospitalization, Other)
  Sender: FDA-Public Use
  Company Number: US-GENENTECH-246823

PATIENT
  Sex: Male
  Weight: 92.517 kg

DRUGS (3)
  1. RAPTIVA [Suspect]
     Indication: PSORIASIS
     Dosage: 95 MG, 1/WEEK
     Route: 058
     Dates: start: 20070420
  2. RAPTIVA [Suspect]
     Indication: PSORIATIC ARTHROPATHY
  3. TACLONEX OINTMENT [Concomitant]
     Indication: DRUG USE FOR UNKNOWN INDICATION
     Route: 061

REACTIONS (1)
  - DIVERTICULUM [None]
